FAERS Safety Report 7396140-8 (Version None)
Quarter: 2011Q2

REPORT INFORMATION
  Report Type: 
  Country: None (occurrence: None)
  Receive Date: 20110406
  Receipt Date: 20110329
  Transmission Date: 20111010
  Serious: Yes (Death)
  Sender: FDA-Public Use
  Company Number: DE-GENZYME-RENA-1001133

PATIENT
  Sex: Female
  Weight: 52.7 kg

DRUGS (13)
  1. RENVELA [Suspect]
     Indication: HYPERPHOSPHATAEMIA
     Dosage: 0.8 G, QD
     Dates: start: 20100314, end: 20100614
  2. EFFORTIL PLUS [Concomitant]
     Indication: BLOOD PRESSURE INCREASED
     Dosage: 20 UNK, BID
  3. TORAGAMMA [Concomitant]
     Indication: PRODUCT USED FOR UNKNOWN INDICATION
     Dosage: 2.5 MG, BID
  4. DOXEPIN [Concomitant]
     Indication: NERVOUS SYSTEM DISORDER
  5. LOOP DIURETIC [Concomitant]
     Indication: PRODUCT USED FOR UNKNOWN INDICATION
  6. HEPARIN SODIUM [Concomitant]
     Indication: PRODUCT USED FOR UNKNOWN INDICATION
     Dosage: UNK % OF TOTAL HB, UNK
  7. EPOGEN [Concomitant]
     Indication: PRODUCT USED FOR UNKNOWN INDICATION
  8. ADDIVIT [Concomitant]
     Indication: VITAMIN SUPPLEMENTATION
  9. PANTOPRAZOLE SODIUM [Concomitant]
     Indication: PRODUCT USED FOR UNKNOWN INDICATION
     Dosage: 40 MG, BID
  10. ALLO-CT [Concomitant]
     Indication: BLOOD URIC ACID ABNORMAL
     Dosage: 150 MG, QD
  11. IRON SUBSITITUTION [Concomitant]
     Indication: PRODUCT USED FOR UNKNOWN INDICATION
  12. COLECALCIFEROL [Concomitant]
     Indication: VITAMIN D
     Dosage: 20000 IU, Q2W
  13. LAXOBERAL [Concomitant]
     Indication: LAXATIVE SUPPORTIVE CARE
     Dosage: UNK

REACTIONS (1)
  - SEPSIS [None]
